FAERS Safety Report 23540361 (Version 2)
Quarter: 2024Q2

REPORT INFORMATION
  Report Type: Spontaneous
  Country: US (occurrence: US)
  Receive Date: 20240219
  Receipt Date: 20240402
  Transmission Date: 20240716
  Serious: No
  Sender: FDA-Public Use
  Company Number: US-JNJFOC-20240171946

PATIENT
  Age: 75 Year
  Sex: Female

DRUGS (1)
  1. WOMENS ROGAINE UNSCENTED [Suspect]
     Active Substance: MINOXIDIL
     Indication: Alopecia
     Dosage: 1/2 CAP AND ONCE A DAY (AS PER DIRECTIONS)
     Route: 061
     Dates: start: 20231001, end: 2023

REACTIONS (5)
  - Application site exfoliation [Recovered/Resolved]
  - Application site erythema [Recovered/Resolved]
  - Application site irritation [Recovered/Resolved]
  - Application site pruritus [Recovered/Resolved]
  - Application site rash [Recovered/Resolved]

NARRATIVE: CASE EVENT DATE: 20231001
